FAERS Safety Report 12422714 (Version 1)
Quarter: 2016Q2

REPORT INFORMATION
  Report Type: Spontaneous
  Country: US (occurrence: US)
  Receive Date: 20160601
  Receipt Date: 20160601
  Transmission Date: 20160815
  Serious: No
  Sender: FDA-Public Use
  Company Number: US-ASTRAZENECA-2016SE37863

PATIENT
  Sex: Female
  Weight: 50.8 kg

DRUGS (3)
  1. ESTROGEN [Concomitant]
     Active Substance: ESTRONE\SUS SCROFA OVARY
     Indication: BLOOD OESTROGEN ABNORMAL
     Dosage: 28 DAYS THEN STOP FOR A WEEK MONTHLY
     Route: 048
  2. DEPROVERA [Concomitant]
     Indication: PROGESTERONE ABNORMAL
     Dosage: 2 WEEKS EVERY OTHER MONTH
     Route: 048
  3. SYMBICORT [Suspect]
     Active Substance: BUDESONIDE\FORMOTEROL FUMARATE DIHYDRATE
     Indication: ASTHMA
     Dosage: 160/4.5 MCG 2 PUFFS TWICE A DAY
     Route: 055
     Dates: start: 20160401

REACTIONS (3)
  - Device malfunction [Unknown]
  - Muscle spasms [Unknown]
  - Underdose [Unknown]
